FAERS Safety Report 21648168 (Version 1)
Quarter: 2022Q4

REPORT INFORMATION
  Report Type: Spontaneous
  Country: GB (occurrence: GB)
  Receive Date: 20221128
  Receipt Date: 20221128
  Transmission Date: 20230113
  Serious: Yes (Other)
  Sender: FDA-Public Use
  Company Number: None

PATIENT
  Age: 30 Year
  Sex: Female
  Weight: 76 kg

DRUGS (7)
  1. MONTELUKAST SODIUM [Suspect]
     Active Substance: MONTELUKAST SODIUM
     Dosage: ONE TABLET  TO BE TAKEN AT NIGHT
     Dates: start: 20220929
  2. BECLOMETHASONE DIPROPIONATE [Concomitant]
     Active Substance: BECLOMETHASONE DIPROPIONATE
     Dosage: TWO PUFFS TO BE SPRAYED INTO EACH NOSTRIL TWICE.
     Route: 045
     Dates: start: 20180705
  3. DESOGESTREL [Concomitant]
     Active Substance: DESOGESTREL
     Dosage: TAKE ONE TABLET DAILY AT THE SAME TIME CONTINUO.
     Dates: start: 20221031
  4. BUDESONIDE\FORMOTEROL [Concomitant]
     Active Substance: BUDESONIDE\FORMOTEROL
     Dosage: MAINTENANCE, 2 PUFFS TWICE A DAY. FOR IMMEDIATE...
     Dates: start: 20210809
  5. ERYTHROMYCIN [Concomitant]
     Active Substance: ERYTHROMYCIN
     Dosage: TWO TO BE TAKEN TWICE DAILY
     Dates: start: 20220823
  6. PROPANTHELINE BROMIDE [Concomitant]
     Active Substance: PROPANTHELINE BROMIDE
     Dosage: TAKE ONE TABLET TWICE DAILY WHEN NEEDED (CAN TA...(AS NECESSARY)
     Dates: start: 20220823
  7. ALBUTEROL [Concomitant]
     Active Substance: ALBUTEROL
     Dosage: INHALE 2 DOSES AS NEEDED (AS NECESSARY)
     Route: 055
     Dates: start: 20180705

REACTIONS (1)
  - Sensation of foreign body [Recovered/Resolved]

NARRATIVE: CASE EVENT DATE: 20221116
